FAERS Safety Report 15742255 (Version 1)
Quarter: 2018Q4

REPORT INFORMATION
  Report Type: Spontaneous
  Country: FR (occurrence: FR)
  Receive Date: 20181219
  Receipt Date: 20181219
  Transmission Date: 20190205
  Serious: Yes (Life-Threatening, Other)
  Sender: FDA-Public Use
  Company Number: FR-SAKK-2018SA344081AA

PATIENT
  Age: 78 Year
  Sex: Female
  Weight: 75.3 kg

DRUGS (8)
  1. LOVENOX [Suspect]
     Active Substance: ENOXAPARIN SODIUM
     Dosage: 0.7 ML, QD
     Route: 058
  2. AMOXICILLIN. [Suspect]
     Active Substance: AMOXICILLIN
     Indication: MENINGITIS
     Dosage: 12 G, QD
     Dates: start: 20181029, end: 20181105
  3. ACICLOVIR [Suspect]
     Active Substance: ACYCLOVIR
     Indication: MENINGITIS
     Dosage: 210 MG, QD
     Dates: start: 20181029, end: 20181105
  4. MONOCRIXO [Concomitant]
     Active Substance: TRAMADOL HYDROCHLORIDE
  5. FENOFIBRATE. [Suspect]
     Active Substance: FENOFIBRATE
     Dosage: 160 MG
     Route: 048
  6. GENTAMICIN SULFATE. [Suspect]
     Active Substance: GENTAMICIN SULFATE
     Indication: MENINGITIS
     Dosage: 210 MG, QD
     Dates: start: 20181029, end: 20181105
  7. SPIRONOLACTONE. [Suspect]
     Active Substance: SPIRONOLACTONE
     Indication: HYPERTENSION
     Dosage: 25 MG
     Route: 048
  8. PANTOPRAZOLE [Concomitant]
     Active Substance: PANTOPRAZOLE

REACTIONS (1)
  - Acute kidney injury [Recovered/Resolved]

NARRATIVE: CASE EVENT DATE: 20181105
